FAERS Safety Report 14076655 (Version 3)
Quarter: 2018Q1

REPORT INFORMATION
  Report Type: Report from Study
  Country: None (occurrence: US)
  Receive Date: 20171011
  Receipt Date: 20180104
  Transmission Date: 20180508
  Serious: Yes (Other)
  Sender: FDA-Public Use
  Company Number: US-ABBVIE-17K-163-2117976-00

PATIENT
  Age: 48 Year
  Sex: Female

DRUGS (1)
  1. HUMIRA [Suspect]
     Active Substance: ADALIMUMAB
     Indication: CROHN^S DISEASE
     Route: 058
     Dates: end: 201709

REACTIONS (16)
  - Headache [Unknown]
  - Neck pain [Unknown]
  - Nasal septum perforation [Unknown]
  - Asthenia [Unknown]
  - Fatigue [Unknown]
  - Abdominal distension [Unknown]
  - Escherichia infection [Unknown]
  - Nasal septum deviation [Unknown]
  - Procedural pain [Unknown]
  - Pyrexia [Unknown]
  - Hydrocephalus [Unknown]
  - Cough [Unknown]
  - Back pain [Unknown]
  - Cerebrospinal fluid leakage [Unknown]
  - Shunt malfunction [Unknown]
  - Crohn^s disease [Recovered/Resolved]

NARRATIVE: CASE EVENT DATE: 201608
